FAERS Safety Report 19646618 (Version 1)
Quarter: 2021Q3

REPORT INFORMATION
  Report Type: Spontaneous
  Country: US (occurrence: US)
  Receive Date: 20210802
  Receipt Date: 20210802
  Transmission Date: 20211014
  Serious: No
  Sender: FDA-Public Use
  Company Number: US-GW PHARMA-202107USGW03694

PATIENT

DRUGS (1)
  1. EPIDIOLEX [Suspect]
     Active Substance: CANNABIDIOL
     Indication: LENNOX-GASTAUT SYNDROME
     Dosage: 680 MILLIGRAM, QD (330 MG IN MORNING AND 350 MG IN THE EVENING)
     Route: 048
     Dates: start: 20190725

REACTIONS (1)
  - Fatigue [Unknown]
